FAERS Safety Report 10441454 (Version 4)
Quarter: 2014Q4

REPORT INFORMATION
  Report Type: Spontaneous
  Country: US (occurrence: None)
  Receive Date: 20140908
  Receipt Date: 20141222
  Transmission Date: 20150528
  Serious: Yes (Death, Hospitalization)
  Sender: FDA-Public Use
  Company Number: 2014CT000092

PATIENT
  Age: 65 Year
  Sex: Female
  Weight: 120.2 kg

DRUGS (18)
  1. KORLYM [Suspect]
     Active Substance: MIFEPRISTONE
     Indication: CUSHING^S SYNDROME
     Route: 048
     Dates: start: 20140618
  2. FENTANYL. [Concomitant]
     Active Substance: FENTANYL
  3. RANITIDINE [Concomitant]
     Active Substance: RANITIDINE\RANITIDINE HYDROCHLORIDE
  4. LANTUS [Concomitant]
     Active Substance: INSULIN GLARGINE
  5. PROZAC [Concomitant]
     Active Substance: FLUOXETINE HYDROCHLORIDE
  6. MIRAPEX [Concomitant]
     Active Substance: PRAMIPEXOLE DIHYDROCHLORIDE
  7. SAXAGLIPTIN [Concomitant]
     Active Substance: SAXAGLIPTIN
  8. DIPHENHYDRAMINE [Concomitant]
     Active Substance: DIPHENHYDRAMINE
  9. AMBIEN [Concomitant]
     Active Substance: ZOLPIDEM TARTRATE
  10. DILAUDID [Concomitant]
     Active Substance: HYDROMORPHONE HYDROCHLORIDE
  11. PREMARIN [Concomitant]
     Active Substance: ESTROGENS, CONJUGATED
  12. PROVENTIL [Concomitant]
     Active Substance: ALBUTEROL
  13. ACCUPRIL [Concomitant]
     Active Substance: QUINAPRIL HYDROCHLORIDE
  14. SYNTHROID [Concomitant]
     Active Substance: LEVOTHYROXINE SODIUM
  15. ASPIRIN. [Concomitant]
     Active Substance: ASPIRIN
  16. HUMALOG [Concomitant]
     Active Substance: INSULIN LISPRO
  17. DIAZEPAM. [Concomitant]
     Active Substance: DIAZEPAM
  18. ATENOLOL. [Concomitant]
     Active Substance: ATENOLOL

REACTIONS (7)
  - Infection [None]
  - Pneumonia [None]
  - Urinary tract infection [None]
  - Furuncle [None]
  - Carbuncle [None]
  - Fungal infection [None]
  - Blood glucose decreased [None]

NARRATIVE: CASE EVENT DATE: 201406
